FAERS Safety Report 19520334 (Version 2)
Quarter: 2022Q2

REPORT INFORMATION
  Report Type: Other
  Country: US (occurrence: None)
  Receive Date: 20210712
  Receipt Date: 20220617
  Transmission Date: 20220721
  Serious: Yes (Hospitalization)
  Sender: FDA-Public Use
  Company Number: US-ROCHE-2864890

PATIENT
  Age: 54 Year
  Sex: Female

DRUGS (1)
  1. OCRELIZUMAB [Suspect]
     Active Substance: OCRELIZUMAB
     Indication: Relapsing multiple sclerosis
     Dosage: SINGLE INFUSION
     Route: 065

REACTIONS (2)
  - Meningitis aseptic [Recovering/Resolving]
  - CSF glucose decreased [Recovering/Resolving]
